FAERS Safety Report 7956308-6 (Version None)
Quarter: 2011Q4

REPORT INFORMATION
  Report Type: 
  Country: None (occurrence: None)
  Receive Date: 20111125
  Receipt Date: 20111116
  Transmission Date: 20120403
  Serious: Yes (Other)
  Sender: FDA-Public Use
  Company Number: 2011030308

PATIENT
  Sex: Female
  Weight: 95.709 kg

DRUGS (5)
  1. ACIPHEX [Concomitant]
  2. ROPINIROLE [Concomitant]
  3. ADVAIR DISKUS 100/50 [Concomitant]
  4. HIZENTRA [Suspect]
     Indication: PRIMARY IMMUNODEFICIENCY SYNDROME
     Dosage: (40 G, OVER 1 HOUR 15 MIN SUBCUTANEOUS), (10 G 1X/WEEK, 20MLS OVER 7 MINUTES SUBCUTANEOUS)
     Route: 058
     Dates: start: 20111101
  5. HIZENTRA [Suspect]

REACTIONS (8)
  - WEIGHT INCREASED [None]
  - DIZZINESS [None]
  - INCORRECT DRUG ADMINISTRATION RATE [None]
  - DEVICE INFUSION ISSUE [None]
  - PAIN IN EXTREMITY [None]
  - DEVICE MALFUNCTION [None]
  - BACK PAIN [None]
  - SKIN MASS [None]
